FAERS Safety Report 10667468 (Version 4)
Quarter: 2015Q1

REPORT INFORMATION
  Report Type: Spontaneous
  Country: US (occurrence: US)
  Receive Date: 20141222
  Receipt Date: 20150130
  Transmission Date: 20150720
  Serious: No
  Sender: FDA-Public Use
  Company Number: US-009507513-1110USA03612

PATIENT
  Sex: Male

DRUGS (1)
  1. PROPECIA [Suspect]
     Active Substance: FINASTERIDE
     Indication: ALOPECIA
     Dosage: 1 MG, UNK
     Route: 048
     Dates: start: 20100212, end: 20100930

REACTIONS (24)
  - Tension headache [Unknown]
  - Withdrawal syndrome [Recovered/Resolved]
  - Depression [Not Recovered/Not Resolved]
  - Testicular pain [Unknown]
  - Anxiety [Not Recovered/Not Resolved]
  - Hormone level abnormal [Unknown]
  - Feeling abnormal [Not Recovered/Not Resolved]
  - Sexual dysfunction [Unknown]
  - Fatigue [Unknown]
  - Penile pain [Unknown]
  - Libido decreased [Not Recovered/Not Resolved]
  - Ejaculation failure [Unknown]
  - Penis disorder [Unknown]
  - Genital hypoaesthesia [Unknown]
  - Hypogonadism [Unknown]
  - Influenza [Unknown]
  - Weight increased [Unknown]
  - Arthralgia [Unknown]
  - Cardiovascular disorder [Unknown]
  - Sexual dysfunction [Unknown]
  - Cognitive disorder [Unknown]
  - Muscle atrophy [Unknown]
  - Erectile dysfunction [Unknown]
  - Ejaculation disorder [Unknown]

NARRATIVE: CASE EVENT DATE: 2010
